FAERS Safety Report 8214350-4 (Version None)
Quarter: 2012Q1

REPORT INFORMATION
  Report Type: 
  Country: None (occurrence: None)
  Receive Date: 20120227
  Receipt Date: 20111202
  Transmission Date: 20120608
  Serious: No
  Sender: FDA-Public Use
  Company Number: 341562

PATIENT
  Age: 76 Year
  Sex: Female

DRUGS (3)
  1. HUMALOG [Concomitant]
  2. LANTUS [Concomitant]
  3. VICTOZA [Suspect]
     Indication: PRODUCT USED FOR UNKNOWN INDICATION
     Dosage: SUBCUTANEOUS
     Route: 058

REACTIONS (4)
  - BLOOD GLUCOSE DECREASED [None]
  - NAUSEA [None]
  - ABDOMINAL PAIN UPPER [None]
  - WEIGHT DECREASED [None]
